FAERS Safety Report 13034961 (Version 1)
Quarter: 2016Q4

REPORT INFORMATION
  Report Type: Report from Study
  Country: MX (occurrence: MX)
  Receive Date: 20161216
  Receipt Date: 20161216
  Transmission Date: 20170207
  Serious: Yes (Death)
  Sender: FDA-Public Use
  Company Number: MX-AMGEN-MEXSL2016175647

PATIENT
  Age: 36 Year
  Sex: Male

DRUGS (2)
  1. VECTIBIX [Suspect]
     Active Substance: PANITUMUMAB
     Indication: COLORECTAL CANCER METASTATIC
     Dosage: 380 MG, Q2WK
     Route: 042
     Dates: start: 20161026, end: 20161108
  2. VECTIBIX [Suspect]
     Active Substance: PANITUMUMAB
     Indication: METASTASES TO LIVER

REACTIONS (1)
  - Death [Fatal]

NARRATIVE: CASE EVENT DATE: 20161130
